FAERS Safety Report 6232699-1 (Version None)
Quarter: 2009Q2

REPORT INFORMATION
  Report Type: 
  Country: None (occurrence: None)
  Receive Date: 20090617
  Receipt Date: 20090520
  Transmission Date: 20091009
  Serious: Yes (Other)
  Sender: FDA-Public Use
  Company Number: PHHY2009BR17099

PATIENT
  Age: 52 Year
  Sex: Female
  Weight: 52 kg

DRUGS (4)
  1. FORASEQ [Suspect]
     Indication: CHRONIC OBSTRUCTIVE PULMONARY DISEASE
     Dosage: 12/400 MCG, 2 INHALATIONS WITH EACH ACTIVE INGRADIENT PER DAY
  2. FORASEQ [Suspect]
     Indication: COUGH
  3. FORASEQ [Suspect]
     Indication: DYSPNOEA
  4. OMEPRAZOLE [Concomitant]
     Indication: REFLUX OESOPHAGITIS
     Dosage: 1 TABLET/DAY,UNDER FASTING
     Route: 048

REACTIONS (4)
  - COUGH [None]
  - DRUG ADMINISTRATION ERROR [None]
  - DYSPNOEA [None]
  - WEIGHT DECREASED [None]
